FAERS Safety Report 7971053-9 (Version None)
Quarter: 2011Q4

REPORT INFORMATION
  Report Type: 
  Country: None (occurrence: None)
  Receive Date: 20111212
  Receipt Date: 20111212
  Transmission Date: 20120403
  Serious: Yes (Hospitalization, Disabling)
  Sender: FDA-Public Use
  Company Number: None

PATIENT
  Age: 66 Year
  Sex: Male
  Weight: 88.45 kg

DRUGS (2)
  1. TERBINAFINE HCL [Suspect]
     Indication: PRURITUS
     Dosage: ONE
     Route: 048
     Dates: start: 20111120, end: 20111209
  2. TERBINAFINE HCL [Suspect]
     Indication: BURNING SENSATION
     Dosage: ONE
     Route: 048
     Dates: start: 20111120, end: 20111209

REACTIONS (5)
  - DIZZINESS [None]
  - SINUS HEADACHE [None]
  - HEADACHE [None]
  - CEREBRAL CYST [None]
  - EAR PAIN [None]
